FAERS Safety Report 11702981 (Version 1)
Quarter: 2015Q4

REPORT INFORMATION
  Report Type: Spontaneous
  Country: ES (occurrence: ES)
  Receive Date: 20151105
  Receipt Date: 20151105
  Transmission Date: 20160304
  Serious: Yes (Other)
  Sender: FDA-Public Use
  Company Number: ALCN2015ES006880

PATIENT
  Age: 7 Year
  Sex: Male

DRUGS (1)
  1. AZOPT [Suspect]
     Active Substance: BRINZOLAMIDE
     Indication: DEVELOPMENTAL GLAUCOMA
     Dosage: UNK
     Route: 047

REACTIONS (1)
  - Intraocular pressure increased [Recovered/Resolved]
